FAERS Safety Report 24648844 (Version 1)
Quarter: 2024Q4

REPORT INFORMATION
  Report Type: Spontaneous
  Country: US (occurrence: US)
  Receive Date: 20241121
  Receipt Date: 20241121
  Transmission Date: 20250114
  Serious: No
  Sender: ALEXION PHARMACEUTICALS
  Company Number: US-AstraZeneca-CH-00752282A

PATIENT

DRUGS (4)
  1. KANUMA [Suspect]
     Active Substance: SEBELIPASE ALFA
     Indication: Lysosomal acid lipase deficiency
     Dosage: UNK UNK, QW
  2. KANUMA [Suspect]
     Active Substance: SEBELIPASE ALFA
     Dosage: UNK UNK, QW
  3. KANUMA [Suspect]
     Active Substance: SEBELIPASE ALFA
     Dosage: UNK UNK, QW
  4. KANUMA [Suspect]
     Active Substance: SEBELIPASE ALFA
     Dosage: UNK UNK, QW

REACTIONS (2)
  - Aspartate aminotransferase increased [Unknown]
  - Alanine aminotransferase increased [Unknown]
